FAERS Safety Report 6900703-0 (Version None)
Quarter: 2010Q3

REPORT INFORMATION
  Report Type: 
  Country: None (occurrence: None)
  Receive Date: 20100803
  Receipt Date: 20100722
  Transmission Date: 20110219
  Serious: Yes (Other)
  Sender: FDA-Public Use
  Company Number: BR-ELI_LILLY_AND_COMPANY-BR201006008073

PATIENT
  Sex: Male
  Weight: 69 kg

DRUGS (3)
  1. FORTEO [Suspect]
     Indication: OSTEOPOROSIS
     Dosage: UNK, DAILY (1/D)
     Route: 058
     Dates: start: 20090901, end: 20091201
  2. LANTUS [Concomitant]
     Indication: DIABETES MELLITUS
     Dosage: UNK, 3/D
     Route: 058
     Dates: start: 19900101
  3. ALENDRONATO SODICO [Concomitant]
     Indication: OSTEOPOROSIS
     Dosage: UNK, DAILY (1/D)
     Route: 048
     Dates: start: 20090601

REACTIONS (1)
  - NEOPLASM MALIGNANT [None]
